FAERS Safety Report 5792433-6 (Version None)
Quarter: 2008Q2

REPORT INFORMATION
  Report Type: 
  Country: None (occurrence: None)
  Receive Date: 20080626
  Receipt Date: 20080616
  Transmission Date: 20081010
  Serious: Yes (Other)
  Sender: FDA-Public Use
  Company Number: DE-PFIZER INC-2008050646

PATIENT
  Age: 23 Year
  Sex: Female

DRUGS (6)
  1. ZELDOX (CAPSULES) [Suspect]
     Indication: BORDERLINE PERSONALITY DISORDER
     Route: 048
  2. ZELDOX (CAPSULES) [Suspect]
     Indication: SCHIZOPHRENIA
  3. FLUPENTIXOL DECANOATE [Suspect]
     Indication: BORDERLINE PERSONALITY DISORDER
     Route: 048
  4. FLUPENTIXOL DECANOATE [Suspect]
     Indication: SCHIZOPHRENIA
  5. LORAZEPAM [Concomitant]
     Route: 048
     Dates: start: 20080425, end: 20080515
  6. DIAZEPAM [Concomitant]
     Route: 048

REACTIONS (2)
  - HYPERCOAGULATION [None]
  - THROMBOSIS [None]
